FAERS Safety Report 9781554 (Version 1)
Quarter: 2013Q4

REPORT INFORMATION
  Report Type: Spontaneous
  Country: US (occurrence: None)
  Receive Date: 20131223
  Receipt Date: 20131223
  Transmission Date: 20140711
  Serious: Yes (Hospitalization)
  Sender: FDA-Public Use
  Company Number: None

PATIENT
  Age: 57 Year
  Sex: Male
  Weight: 91 kg

DRUGS (2)
  1. CLOPIDOGREL [Suspect]
     Indication: ANGINA UNSTABLE
     Route: 048
     Dates: start: 20131028, end: 20131204
  2. WARFARIN [Suspect]
     Indication: ATRIAL FIBRILLATION
     Route: 048
     Dates: start: 20131028, end: 20131204

REACTIONS (2)
  - Epistaxis [None]
  - International normalised ratio increased [None]
